FAERS Safety Report 8436576-7 (Version None)
Quarter: 2012Q2

REPORT INFORMATION
  Report Type: 
  Country: None (occurrence: None)
  Receive Date: 20120607
  Receipt Date: 20120607
  Transmission Date: 20120825
  Serious: No
  Sender: FDA-Public Use
  Company Number: None

PATIENT

DRUGS (1)
  1. ALBUMIN (HUMAN) [Suspect]

REACTIONS (1)
  - BLOOD ALBUMIN INCREASED [None]
